FAERS Safety Report 18964416 (Version 1)
Quarter: 2021Q1

REPORT INFORMATION
  Report Type: Other
  Country: US (occurrence: US)
  Receive Date: 20210303
  Receipt Date: 20210303
  Transmission Date: 20210420
  Serious: Yes (Death)
  Sender: FDA-Public Use
  Company Number: US-ROCHE-2742425

PATIENT
  Sex: Female

DRUGS (2)
  1. OCREVUS [Suspect]
     Active Substance: OCRELIZUMAB
     Indication: RELAPSING MULTIPLE SCLEROSIS
     Dosage: ONGOING :NO, INFUSE 300 MG IV DAY 1 AND DAY 15, 600 MG EVERY 6 MONTH
     Route: 042
     Dates: start: 20200923
  2. OCREVUS [Suspect]
     Active Substance: OCRELIZUMAB
     Indication: MULTIPLE SCLEROSIS
     Route: 042
     Dates: start: 20201007, end: 20201007

REACTIONS (2)
  - COVID-19 [Fatal]
  - Myocardial infarction [Fatal]
